FAERS Safety Report 9340951 (Version 2)
Quarter: 2014Q2

REPORT INFORMATION
  Report Type: Spontaneous
  Country: US (occurrence: US)
  Receive Date: 20130610
  Receipt Date: 20140409
  Transmission Date: 20141212
  Serious: Yes (Hospitalization, Other)
  Sender: FDA-Public Use
  Company Number: US-B.I. PHARMACEUTICALS,INC./RIDGEFIELD-2013-BI-15929BP

PATIENT
  Age: 72 Year
  Sex: Female
  Weight: 90.72 kg

DRUGS (7)
  1. PRADAXA [Suspect]
     Indication: ANTICOAGULANT THERAPY
     Dosage: 150 MG
     Route: 048
     Dates: start: 201105
  2. MULTAQ [Concomitant]
     Dosage: 800 MG
     Route: 048
  3. LISINOPRIL [Concomitant]
     Dosage: 2.5 MG
     Route: 048
  4. BACTRIM [Concomitant]
     Route: 048
  5. COLACE [Concomitant]
     Dosage: 200 MG
     Route: 048
  6. LOPRESSOR [Concomitant]
     Dosage: 50 MG
     Route: 048
  7. IRON [Concomitant]
     Route: 048

REACTIONS (4)
  - Wound haemorrhage [Unknown]
  - Coagulopathy [Unknown]
  - Haemorrhagic anaemia [Unknown]
  - Intestinal obstruction [Recovered/Resolved]
